FAERS Safety Report 21512620 (Version 2)
Quarter: 2022Q4

REPORT INFORMATION
  Report Type: Report from Study
  Country: US (occurrence: US)
  Receive Date: 20221027
  Receipt Date: 20221124
  Transmission Date: 20230112
  Serious: Yes (Other)
  Sender: FDA-Public Use
  Company Number: US-NOVARTISPH-NVSC2022US238297

PATIENT
  Sex: Female

DRUGS (2)
  1. ENTRESTO [Suspect]
     Active Substance: SACUBITRIL\VALSARTAN
     Indication: Product used for unknown indication
     Dosage: 1 DOSAGE FORM, BID
     Route: 048
  2. PLAVIX [Concomitant]
     Active Substance: CLOPIDOGREL BISULFATE
     Indication: Product used for unknown indication
     Dosage: UNK
     Route: 065

REACTIONS (9)
  - Hepatic cirrhosis [Unknown]
  - Myocardial infarction [Unknown]
  - Thrombosis [Unknown]
  - Weight increased [Unknown]
  - Urinary tract infection [Unknown]
  - Dyspnoea [Unknown]
  - Atrioventricular block [Unknown]
  - Renal disorder [Unknown]
  - Eating disorder [Unknown]
